FAERS Safety Report 25480392 (Version 1)
Quarter: 2025Q2

REPORT INFORMATION
  Report Type: Spontaneous
  Country: CH (occurrence: CH)
  Receive Date: 20250625
  Receipt Date: 20250625
  Transmission Date: 20250716
  Serious: Yes (Other)
  Sender: PFIZER
  Company Number: None

PATIENT
  Age: 56 Year
  Sex: Female
  Weight: 81.8 kg

DRUGS (10)
  1. CYTARABINE [Suspect]
     Active Substance: CYTARABINE
     Dosage: 1880 MG, 1X/DAY
     Route: 042
     Dates: start: 20240110, end: 20240116
  2. DAUNORUBICIN HYDROCHLORIDE [Suspect]
     Active Substance: DAUNORUBICIN HYDROCHLORIDE
     Dosage: 113 MG, 1X/DAY
     Route: 042
     Dates: start: 20240110, end: 20240112
  3. NOXAFIL [Suspect]
     Active Substance: POSACONAZOLE
     Dosage: 300 MG, 1X/DAY (3-0-0-0)
     Route: 048
     Dates: start: 20240114
  4. BACTRIM [Concomitant]
     Active Substance: SULFAMETHOXAZOLE\TRIMETHOPRIM
     Route: 048
     Dates: start: 20240113
  5. POTASSIUM BICARBONATE\POTASSIUM CITRATE [Concomitant]
     Active Substance: POTASSIUM BICARBONATE\POTASSIUM CITRATE
     Dosage: 30 MMOL, 3X/DAY (1-1-1-0)
     Route: 048
     Dates: start: 20240119
  6. RYDAPT [Concomitant]
     Active Substance: MIDOSTAURIN
     Dosage: 50 MG, 2X/DAY (2-0-2-0)
     Route: 048
     Dates: start: 20240117, end: 20240130
  7. LEVOFLOXACIN [Concomitant]
     Active Substance: LEVOFLOXACIN
     Dosage: 500 MG, 1X/DAY (1-0-0-0)
     Route: 048
     Dates: start: 20240110
  8. FILGRASTIM [Concomitant]
     Active Substance: FILGRASTIM
     Dosage: 10 10*6 IU, 1X/DAY (UNTIL NADIR WAS REACHED)
     Route: 058
  9. MOTILIUM [Concomitant]
     Active Substance: DOMPERIDONE
     Dosage: 10 MG, 2X/DAY (1-0-1-0)
     Route: 060
     Dates: start: 20240122
  10. ESOMEPRAZOLE [Concomitant]
     Active Substance: ESOMEPRAZOLE
     Dosage: 40 MG, 1X/DAY
     Route: 048

REACTIONS (1)
  - Cardiomyopathy [Recovering/Resolving]

NARRATIVE: CASE EVENT DATE: 20240208
